FAERS Safety Report 9165515 (Version 1)
Quarter: 2013Q1

REPORT INFORMATION
  Report Type: Spontaneous
  Country: US (occurrence: US)
  Receive Date: 20130315
  Receipt Date: 20130315
  Transmission Date: 20140127
  Serious: Yes (Hospitalization, Other)
  Sender: FDA-Public Use
  Company Number: US-SHIRE-ALL1-2013-01421

PATIENT
  Age: 15 Year
  Sex: Female

DRUGS (4)
  1. MESALAZINE [Suspect]
     Indication: COLITIS ULCERATIVE
     Dosage: 4.8 MG, DAILY DOSE
     Route: 048
  2. AZITHROMYCIN [Suspect]
     Indication: ATYPICAL PNEUMONIA
     Dosage: UNK, UNKNOWN
     Route: 065
  3. AMLODIPINE [Concomitant]
     Indication: HYPERTENSION
     Dosage: UNK, UNKNOWN
     Route: 065
  4. 6-MP [Concomitant]
     Indication: COLITIS ULCERATIVE
     Dosage: 50 MG, DAILY DOSE
     Route: 065

REACTIONS (5)
  - Atypical pneumonia [Unknown]
  - Renal failure acute [Unknown]
  - Cytomegalovirus infection [Unknown]
  - Tubulointerstitial nephritis [Unknown]
  - Off label use [Recovered/Resolved]
